FAERS Safety Report 24340309 (Version 1)
Quarter: 2024Q3

REPORT INFORMATION
  Report Type: Spontaneous
  Country: US (occurrence: None)
  Receive Date: 20240919
  Receipt Date: 20240919
  Transmission Date: 20241016
  Serious: Yes (Hospitalization)
  Sender: Public
  Company Number: None

PATIENT
  Age: 65 Year
  Sex: Male
  Weight: 84.6 kg

DRUGS (22)
  1. TACROLIMUS [Suspect]
     Active Substance: TACROLIMUS
     Indication: Renal transplant
     Dosage: FREQUENCY : DAILY;?
     Route: 048
     Dates: start: 20240826
  2. Acyclovir [Concomitant]
     Dates: start: 20240826
  3. BUMETANIDE [Concomitant]
     Dates: start: 20240826
  4. CARVEDILOL [Concomitant]
     Active Substance: CARVEDILOL
     Dates: start: 20240826
  5. ELIQUIS [Concomitant]
     Active Substance: APIXABAN
     Dates: start: 20240826
  6. LIVTENCITY [Concomitant]
     Active Substance: MARIBAVIR
     Dates: start: 20240826
  7. PANTOPRAZOLE [Concomitant]
     Dates: start: 20240826
  8. PREDNISONE [Concomitant]
     Dates: start: 20240826
  9. ROSUVASTATIN [Concomitant]
     Active Substance: ROSUVASTATIN\ROSUVASTATIN CALCIUM
     Dates: start: 20240826
  10. INSULIN LISPRO [Concomitant]
     Dates: start: 20240826
  11. COLACE [Concomitant]
     Dates: start: 20240826
  12. FOLIC ACID [Concomitant]
     Active Substance: FOLIC ACID
     Dates: start: 20240826
  13. METOPROLOL SUCCINATE [Concomitant]
     Active Substance: METOPROLOL SUCCINATE
     Dates: start: 20240826
  14. Metoprolol er succinate [Concomitant]
     Dates: start: 20240826
  15. MIRTAZAPINE [Concomitant]
     Dates: start: 20240826
  16. TAMSULOSIN [Concomitant]
     Active Substance: TAMSULOSIN
     Dates: start: 20240826
  17. TORSEMIDE [Concomitant]
     Dates: start: 20240826
  18. CALCIUM CARBONATE [Concomitant]
     Dates: start: 20240826
  19. ISOSORBIDE DINITRATE [Concomitant]
     Dates: start: 20240826
  20. MIDODRINE [Concomitant]
     Active Substance: MIDODRINE
     Dates: start: 20240826
  21. ONDANSETRON [Concomitant]
     Dates: start: 20240826
  22. DRISDOL [Concomitant]
     Dates: start: 20240826

REACTIONS (1)
  - Neuropathy peripheral [None]

NARRATIVE: CASE EVENT DATE: 20240914
